FAERS Safety Report 11735140 (Version 1)
Quarter: 2015Q4

REPORT INFORMATION
  Report Type: Spontaneous
  Country: US (occurrence: US)
  Receive Date: 20151113
  Receipt Date: 20151113
  Transmission Date: 20160304
  Serious: Yes (Hospitalization)
  Sender: FDA-Public Use
  Company Number: US-BEH-2015055655

PATIENT
  Sex: Male
  Weight: 20 kg

DRUGS (9)
  1. NASONEX [Concomitant]
     Active Substance: MOMETASONE FUROATE
  2. LIDOCAINE/PRILOCAINE [Concomitant]
  3. CHILDRENS TYLENOL [Concomitant]
     Active Substance: ACETAMINOPHEN
  4. EPINEPHRINE. [Concomitant]
     Active Substance: EPINEPHRINE
  5. DEXAMETHASONE. [Concomitant]
     Active Substance: DEXAMETHASONE
  6. ACETAMINOPHEN-CODEINE [Concomitant]
     Active Substance: ACETAMINOPHEN\CODEINE PHOSPHATE
  7. HIZENTRA [Suspect]
     Active Substance: HUMAN IMMUNOGLOBULIN G
     Indication: IMMUNODEFICIENCY
     Route: 058
  8. DIPHENHYDRAMINE. [Concomitant]
     Active Substance: DIPHENHYDRAMINE
  9. HIZENTRA [Suspect]
     Active Substance: HUMAN IMMUNOGLOBULIN G
     Route: 058

REACTIONS (2)
  - Drug dose omission [Unknown]
  - Ear infection [Unknown]
